FAERS Safety Report 10708215 (Version 1)
Quarter: 2015Q1

REPORT INFORMATION
  Report Type: Spontaneous
  Country: DK (occurrence: IT)
  Receive Date: 20150113
  Receipt Date: 20150113
  Transmission Date: 20150721
  Serious: Yes (Death, Hospitalization)
  Sender: FDA-Public Use
  Company Number: IT-FRI-1000073470

PATIENT
  Age: 91 Year
  Sex: Female

DRUGS (9)
  1. MEMANTINE [Suspect]
     Active Substance: MEMANTINE
     Dosage: 20 MG
     Dates: start: 2008, end: 20111218
  2. SERENASE [Concomitant]
     Active Substance: HALOPERIDOL
     Indication: HALLUCINATION
     Dosage: 8 GTT
     Route: 048
     Dates: start: 2008
  3. LANSOX [Concomitant]
     Active Substance: LANSOPRAZOLE
     Indication: GASTRITIS PROPHYLAXIS
     Route: 048
  4. ANGIZEM [Concomitant]
     Dosage: 120 MG
     Route: 048
     Dates: end: 20111218
  5. LASIX [Concomitant]
     Active Substance: FUROSEMIDE
     Dosage: 125 MG
     Route: 048
  6. ITRIN [Concomitant]
     Indication: HYPERTENSION
     Route: 048
     Dates: end: 20111218
  7. MEMANTINE [Suspect]
     Active Substance: MEMANTINE
     Indication: SENILE DEMENTIA
     Dosage: 15 MG
     Route: 048
     Dates: end: 20141013
  8. CORDARONE [Concomitant]
     Active Substance: AMIODARONE HYDROCHLORIDE
  9. SERENASE [Concomitant]
     Active Substance: HALOPERIDOL
     Dosage: 5 GTT
     Route: 048

REACTIONS (2)
  - Off label use [Recovered/Resolved]
  - Gastrointestinal carcinoma [Fatal]

NARRATIVE: CASE EVENT DATE: 2008
